FAERS Safety Report 9806132 (Version 1)
Quarter: 2014Q1

REPORT INFORMATION
  Report Type: Spontaneous
  Country: GB (occurrence: None)
  Receive Date: 20140107
  Receipt Date: 20140107
  Transmission Date: 20141002
  Serious: Yes (Other)
  Sender: FDA-Public Use
  Company Number: KAD201312-001806

PATIENT
  Sex: 0

DRUGS (1)
  1. TOPOTECAN (TOPOTECAN) [Suspect]
     Indication: METASTASES TO MENINGES
     Route: 018

REACTIONS (2)
  - Meningitis [None]
  - Off label use [None]
